FAERS Safety Report 11817062 (Version 4)
Quarter: 2017Q4

REPORT INFORMATION
  Report Type: Spontaneous
  Country: US (occurrence: US)
  Receive Date: 20151210
  Receipt Date: 20171123
  Transmission Date: 20180320
  Serious: No
  Sender: FDA-Public Use
  Company Number: US-JNJFOC-20150808404

PATIENT
  Age: 16 Year
  Sex: Male

DRUGS (6)
  1. RISPERDAL [Suspect]
     Active Substance: RISPERIDONE
     Indication: POST-TRAUMATIC STRESS DISORDER
     Route: 048
     Dates: start: 20020701, end: 20020708
  2. RISPERDAL [Suspect]
     Active Substance: RISPERIDONE
     Indication: VIOLENCE-RELATED SYMPTOM
     Route: 048
     Dates: start: 20020701, end: 20020708
  3. RISPERDAL [Suspect]
     Active Substance: RISPERIDONE
     Indication: ANXIETY
     Dosage: IN VARYING DOSES OF 0.25 MG AND 0.75 MG
     Route: 048
     Dates: start: 20020222, end: 20020621
  4. RISPERDAL [Suspect]
     Active Substance: RISPERIDONE
     Indication: POST-TRAUMATIC STRESS DISORDER
     Dosage: IN VARYING DOSES OF 0.25 MG AND 0.75 MG
     Route: 048
     Dates: start: 20020222, end: 20020621
  5. RISPERDAL [Suspect]
     Active Substance: RISPERIDONE
     Indication: VIOLENCE-RELATED SYMPTOM
     Dosage: IN VARYING DOSES OF 0.25 MG AND 0.75 MG
     Route: 048
     Dates: start: 20020222, end: 20020621
  6. RISPERDAL [Suspect]
     Active Substance: RISPERIDONE
     Indication: ANXIETY
     Route: 048
     Dates: start: 20020701, end: 20020708

REACTIONS (4)
  - Gynaecomastia [Unknown]
  - Off label use [Unknown]
  - Emotional disorder [Unknown]
  - Product use in unapproved indication [Unknown]

NARRATIVE: CASE EVENT DATE: 2002
